FAERS Safety Report 5456708-2 (Version None)
Quarter: 2007Q3

REPORT INFORMATION
  Report Type: 
  Country: None (occurrence: None)
  Receive Date: 20070917
  Receipt Date: 20070917
  Transmission Date: 20080115
  Serious: Yes (Hospitalization)
  Sender: FDA-Public Use
  Company Number: None

PATIENT
  Age: 78 Year
  Sex: Male

DRUGS (2)
  1. GLIPIZIDE [Suspect]
     Dosage: 20MG BID PO
     Route: 048
     Dates: start: 19960403, end: 20070624
  2. INSULIN [Suspect]
     Dosage: 12UNITS AM SQ
     Route: 058
     Dates: start: 20040721

REACTIONS (1)
  - HYPOGLYCAEMIA [None]
